FAERS Safety Report 7465811-7 (Version None)
Quarter: 2011Q2

REPORT INFORMATION
  Report Type: 
  Country: None (occurrence: None)
  Receive Date: 20110509
  Receipt Date: 20100406
  Transmission Date: 20111010
  Serious: No
  Sender: FDA-Public Use
  Company Number: US-ALEXION-A201000316

PATIENT
  Sex: Female

DRUGS (5)
  1. FOLIC ACID [Concomitant]
     Dosage: 1 MG, QD
     Route: 048
  2. COUMADIN [Concomitant]
     Dosage: 7.5 MG, QOD
     Route: 048
  3. SOLIRIS [Suspect]
     Indication: PAROXYSMAL NOCTURNAL HAEMOGLOBINURIA
     Dosage: UNK
     Route: 042
  4. SOLIRIS [Suspect]
     Dosage: 900 MG, Q2W
     Route: 042
     Dates: start: 20081013
  5. COUMADIN [Concomitant]
     Dosage: 10 MG, QOD
     Route: 048

REACTIONS (5)
  - MUSCULOSKELETAL PAIN [None]
  - STRESS [None]
  - NECK PAIN [None]
  - HEADACHE [None]
  - DYSPNOEA [None]
